FAERS Safety Report 9468921 (Version 1)
Quarter: 2013Q3

REPORT INFORMATION
  Report Type: Spontaneous
  Country: DE (occurrence: DE)
  Receive Date: 20130821
  Receipt Date: 20130821
  Transmission Date: 20140515
  Serious: Yes (Other)
  Sender: FDA-Public Use
  Company Number: DE-MYLANLABS-2013S1017752

PATIENT
  Sex: Male
  Weight: 1.98 kg

DRUGS (4)
  1. AZATHIOPRIN [Suspect]
     Dosage: 75 [MG/D ]
     Route: 064
  2. MESALAZIN [Suspect]
     Dosage: 6000 [MG/D ]
     Route: 064
  3. FOLSAEURE [Concomitant]
     Indication: PROPHYLAXIS OF NEURAL TUBE DEFECT
     Route: 064
  4. SALOFALK /00747601/ [Concomitant]
     Route: 064

REACTIONS (3)
  - Exposure during pregnancy [Unknown]
  - Premature baby [Recovered/Resolved]
  - Feeding disorder neonatal [Recovered/Resolved]
